FAERS Safety Report 9990162 (Version 1)
Quarter: 2014Q1

REPORT INFORMATION
  Report Type: Report from Study
  Country: US (occurrence: US)
  Receive Date: 20140310
  Receipt Date: 20140310
  Transmission Date: 20141002
  Serious: No
  Sender: FDA-Public Use
  Company Number: US-ABBVIE-13P-163-1134442-00

PATIENT
  Age: 68 Year
  Sex: Female

DRUGS (20)
  1. HUMIRA [Suspect]
     Indication: CROHN^S DISEASE
     Dates: start: 20130504
  2. HYDROCHLOROTHIAZIDE [Concomitant]
     Indication: HYPERTENSION
  3. HYDROCHLOROTHIAZIDE [Concomitant]
     Indication: JOINT SWELLING
  4. TOPROL [Concomitant]
     Indication: HYPERTENSION
  5. PRILOSEC [Concomitant]
     Indication: GASTROOESOPHAGEAL REFLUX DISEASE
  6. IMODIUM [Concomitant]
     Indication: CROHN^S DISEASE
     Dosage: 4-8 TIMES A DAY
  7. PRAVASTATIN [Concomitant]
     Indication: HYPERTENSION
  8. PLAQUENIL [Concomitant]
     Indication: ARTHRITIS
  9. LISINOPRIL [Concomitant]
     Indication: HYPERTENSION
  10. SINGULAIR [Concomitant]
     Indication: ASTHMA
  11. AMITRIPTYLINE [Concomitant]
     Indication: SLEEP DISORDER THERAPY
     Dosage: AT BEDTIME
  12. VITAMIN D [Concomitant]
     Indication: CROHN^S DISEASE
  13. ESTER-C [Concomitant]
  14. MULTIVITAMIN [Concomitant]
     Indication: PRODUCT USED FOR UNKNOWN INDICATION
     Dosage: DAILY
  15. TUMS [Concomitant]
     Indication: VITAMIN D
  16. ALBUTEROL HFA [Concomitant]
     Indication: ASTHMA
  17. ADVAIR [Concomitant]
     Indication: ASTHMA
     Dosage: 100/50MG
  18. SULFONAMIDES [Concomitant]
     Indication: PRODUCT USED FOR UNKNOWN INDICATION
  19. AUGMENTIN [Concomitant]
     Indication: PRODUCT USED FOR UNKNOWN INDICATION
  20. CECLOR [Concomitant]
     Indication: PRODUCT USED FOR UNKNOWN INDICATION

REACTIONS (1)
  - Sensory disturbance [Recovered/Resolved]
